FAERS Safety Report 20853022 (Version 2)
Quarter: 2022Q2

REPORT INFORMATION
  Report Type: Other
  Country: DK (occurrence: DK)
  Receive Date: 20220520
  Receipt Date: 20220613
  Transmission Date: 20220720
  Serious: Yes (Life-Threatening)
  Sender: FDA-Public Use
  Company Number: DK-ASTELLAS-2022US017857

PATIENT
  Age: 66 Year
  Sex: Male

DRUGS (3)
  1. AMPHOTERICIN B [Suspect]
     Active Substance: AMPHOTERICIN B
     Indication: Pneumonia
     Dosage: DOSAGE UNKNOWN, STRENGTH 50 MG, BID, EVERY 12 HOURS
     Route: 055
     Dates: start: 20220413
  2. AMPHOTERICIN B [Suspect]
     Active Substance: AMPHOTERICIN B
     Indication: Pneumonia fungal
     Route: 042
     Dates: start: 20220422, end: 20220422
  3. VORICONAZOLE [Concomitant]
     Active Substance: VORICONAZOLE
     Indication: Pneumonia fungal
     Route: 065
     Dates: start: 20220413

REACTIONS (10)
  - Pain in extremity [Recovered/Resolved]
  - Abdominal pain lower [Recovered/Resolved]
  - Pallor [Recovered/Resolved]
  - Defaecation urgency [Recovered/Resolved]
  - Malaise [Recovered/Resolved]
  - Cold sweat [Recovered/Resolved]
  - Nausea [Recovered/Resolved]
  - Vomiting [Recovered/Resolved]
  - Back pain [Recovered/Resolved]
  - Suspected product quality issue [Unknown]

NARRATIVE: CASE EVENT DATE: 20220422
